FAERS Safety Report 4694526-3 (Version None)
Quarter: 2005Q2

REPORT INFORMATION
  Report Type: 
  Country: None (occurrence: None)
  Receive Date: 20050620
  Receipt Date: 20041217
  Transmission Date: 20051028
  Serious: Yes (Hospitalization, Disabling)
  Sender: FDA-Public Use
  Company Number: JP-MERCK-0412USA02686

PATIENT
  Age: 38 Year
  Sex: Male
  Weight: 104 kg

DRUGS (11)
  1. COZAAR [Suspect]
     Indication: HYPERTENSION
     Route: 048
     Dates: start: 20010101, end: 20040310
  2. COZAAR [Suspect]
     Route: 048
     Dates: start: 20041115, end: 20041117
  3. COZAAR [Suspect]
     Route: 048
     Dates: start: 20041118, end: 20041122
  4. COZAAR [Suspect]
     Route: 048
     Dates: start: 20040311, end: 20041024
  5. COZAAR [Suspect]
     Indication: DIABETIC NEPHROPATHY
     Route: 048
     Dates: start: 20010101, end: 20040310
  6. COZAAR [Suspect]
     Route: 048
     Dates: start: 20041115, end: 20041117
  7. COZAAR [Suspect]
     Route: 048
     Dates: start: 20041118, end: 20041122
  8. COZAAR [Suspect]
     Route: 048
     Dates: start: 20040311, end: 20041024
  9. LIPANTIL [Concomitant]
     Indication: HYPERTRIGLYCERIDAEMIA
     Route: 048
     Dates: start: 20040311, end: 20040611
  10. LASIX [Concomitant]
     Indication: DIABETIC NEPHROPATHY
     Route: 048
     Dates: start: 20040601, end: 20041024
  11. [THERAPY UNSPECIFIED] [Concomitant]
     Route: 065

REACTIONS (4)
  - MALAISE [None]
  - MYALGIA [None]
  - RENAL FAILURE CHRONIC [None]
  - RHABDOMYOLYSIS [None]
